FAERS Safety Report 5102090-X (Version None)
Quarter: 2006Q3

REPORT INFORMATION
  Report Type: 
  Country: None (occurrence: None)
  Receive Date: 20060912
  Receipt Date: 20060904
  Transmission Date: 20061208
  Serious: Yes (Hospitalization, Other)
  Sender: FDA-Public Use
  Company Number: PHRM2006FR02462

PATIENT
  Age: 81 Year
  Sex: Female
  Weight: 60 kg

DRUGS (12)
  1. COMTAN [Suspect]
     Indication: PARKINSON'S DISEASE
     Dosage: 400 MG DAILY
     Route: 048
  2. MODOPAR [Suspect]
     Indication: PARKINSON'S DISEASE
     Dosage: 150/600 MG DAILY
     Route: 048
  3. DOLIPRANE [Concomitant]
     Route: 048
  4. PRAZEPAM [Concomitant]
     Route: 048
  5. STABLON [Concomitant]
     Dosage: 12.5 MG, QD
     Route: 048
  6. ANAFRANIL [Concomitant]
     Route: 048
  7. DITROPAN [Concomitant]
     Route: 048
  8. XANAX [Concomitant]
     Route: 048
  9. VASTAREL [Concomitant]
     Route: 048
  10. SEGLOR [Concomitant]
     Route: 048
  11. PARIET [Concomitant]
     Route: 048
  12. DAFALGAN [Concomitant]
     Route: 048

REACTIONS (7)
  - BLOOD PRESSURE INCREASED [None]
  - CONFUSIONAL STATE [None]
  - CREATININE RENAL CLEARANCE DECREASED [None]
  - EXTRAPYRAMIDAL DISORDER [None]
  - FALL [None]
  - HYPERTONIA [None]
  - PYREXIA [None]
